FAERS Safety Report 12695472 (Version 2)
Quarter: 2016Q3

REPORT INFORMATION
  Report Type: Spontaneous
  Country: US (occurrence: US)
  Receive Date: 20160829
  Receipt Date: 20160929
  Transmission Date: 20161109
  Serious: No
  Sender: FDA-Public Use
  Company Number: US-ASTRAZENECA-2016SE77230

PATIENT
  Sex: Male
  Weight: 77.1 kg

DRUGS (3)
  1. SYMBICORT [Suspect]
     Active Substance: BUDESONIDE\FORMOTEROL FUMARATE DIHYDRATE
     Indication: CHRONIC OBSTRUCTIVE PULMONARY DISEASE
     Dosage: 80/4.5MCG 2 PUFFS EVERY 12 HOURS
     Route: 055
     Dates: start: 201603
  2. BRONCHOAID OTC (EPHEDRINE SULFATE\GUAIFENESIN\THEOPHYLLINE) [Suspect]
     Active Substance: EPHEDRINE SULFATE\GUAIFENESIN\THEOPHYLLINE
     Route: 065
     Dates: start: 20160712
  3. IBUPROFEN. [Concomitant]
     Active Substance: IBUPROFEN

REACTIONS (6)
  - Dyspnoea exertional [Not Recovered/Not Resolved]
  - Device malfunction [Unknown]
  - Dry mouth [Not Recovered/Not Resolved]
  - Feeling abnormal [Not Recovered/Not Resolved]
  - Fatigue [Not Recovered/Not Resolved]
  - Intentional product misuse [None]
